FAERS Safety Report 14107092 (Version 2)
Quarter: 2017Q4

REPORT INFORMATION
  Report Type: Other
  Country: JP (occurrence: JP)
  Receive Date: 20171019
  Receipt Date: 20171212
  Transmission Date: 20180321
  Serious: Yes (Hospitalization)
  Sender: FDA-Public Use
  Company Number: JP-EMD SERONO-8190013

PATIENT
  Age: 37 Year
  Sex: Female

DRUGS (1)
  1. SEROPHENE [Suspect]
     Active Substance: CLOMIPHENE CITRATE
     Indication: ASSISTED FERTILISATION
     Route: 048

REACTIONS (2)
  - Ectopic pregnancy [Unknown]
  - Multiple pregnancy [Unknown]
